FAERS Safety Report 12769069 (Version 1)
Quarter: 2016Q3

REPORT INFORMATION
  Report Type: Spontaneous
  Country: GB (occurrence: GB)
  Receive Date: 20160921
  Receipt Date: 20160921
  Transmission Date: 20161109
  Serious: Yes (Life-Threatening, Hospitalization)
  Sender: FDA-Public Use
  Company Number: GB-MYLANLABS-2016M1039292

PATIENT

DRUGS (3)
  1. ASASANTIN [Concomitant]
     Active Substance: ASPIRIN\DIPYRIDAMOLE
     Indication: LACUNAR INFARCTION
     Dosage: UNK
     Dates: start: 200412, end: 201105
  2. CRESTOR [Concomitant]
     Active Substance: ROSUVASTATIN CALCIUM
     Dosage: UNK (SMALL DOSE)
  3. CLOPIDOGREL [Suspect]
     Active Substance: CLOPIDOGREL BISULFATE
     Indication: LACUNAR INFARCTION
     Dosage: UNK (DO NOT REMEMBER)
     Route: 048
     Dates: start: 20110505, end: 20111130

REACTIONS (2)
  - Chest pain [Unknown]
  - Abdominal pain upper [Unknown]
